FAERS Safety Report 4458392-3 (Version None)
Quarter: 2004Q3

REPORT INFORMATION
  Report Type: 
  Country: None (occurrence: None)
  Receive Date: 20040924
  Receipt Date: 20040909
  Transmission Date: 20050211
  Serious: Yes (Other)
  Sender: FDA-Public Use
  Company Number: JP-MERCK-0409USA01120

PATIENT
  Age: 70 Year
  Sex: Female

DRUGS (7)
  1. MM-1 [Suspect]
     Indication: GASTRITIS
     Route: 048
     Dates: start: 19910101, end: 20040801
  2. MYONAL [Suspect]
     Route: 048
  3. GASTER [Suspect]
     Indication: GASTRITIS
     Route: 048
     Dates: start: 19910101, end: 20040801
  4. LOXONIN [Suspect]
     Route: 048
  5. ZOCOR [Suspect]
     Indication: HYPERLIPIDAEMIA
     Route: 048
     Dates: start: 20030601, end: 20040801
  6. SELBEX [Suspect]
     Indication: GASTRITIS
     Route: 048
     Dates: start: 19910101, end: 20040801
  7. VITAMEDIN [Suspect]
     Indication: FACIAL PALSY
     Route: 048
     Dates: start: 19910101, end: 20040801

REACTIONS (1)
  - HEPATIC FUNCTION ABNORMAL [None]
